FAERS Safety Report 18411227 (Version 1)
Quarter: 2020Q4

REPORT INFORMATION
  Report Type: Spontaneous
  Country: US (occurrence: US)
  Receive Date: 20201021
  Receipt Date: 20201021
  Transmission Date: 20210114
  Serious: Yes (Life-Threatening, Hospitalization)
  Sender: FDA-Public Use
  Company Number: US-JNJFOC-20201031908

PATIENT

DRUGS (1)
  1. LIDOCAINE HYDROCHLORIDE. [Suspect]
     Active Substance: LIDOCAINE HYDROCHLORIDE
     Indication: PRODUCT USED FOR UNKNOWN INDICATION
     Route: 065

REACTIONS (22)
  - Haemorrhage [Unknown]
  - Pyrexia [Unknown]
  - Coma [Unknown]
  - Blood creatine phosphokinase increased [Unknown]
  - Renal failure [Unknown]
  - Alanine aminotransferase increased [Unknown]
  - Hypothermia [Unknown]
  - Oliguria [Unknown]
  - Haematemesis [Unknown]
  - Aspartate aminotransferase increased [Unknown]
  - Arrhythmia [Unknown]
  - Toxicity to various agents [Unknown]
  - Hypotension [Unknown]
  - Tachycardia [Unknown]
  - Bradycardia [Unknown]
  - Conduction disorder [Unknown]
  - Haemorrhage intracranial [Unknown]
  - Cardiac arrest [Unknown]
  - Blood creatinine increased [Unknown]
  - Anuria [Unknown]
  - Respiratory arrest [Unknown]
  - Acidosis [Unknown]
